FAERS Safety Report 7751269 (Version 2)
Quarter: 2013Q4

REPORT INFORMATION
  Report Type: Report from Study
  Country: JP (occurrence: JP)
  Receive Date: 20110107
  Receipt Date: 20131203
  Transmission Date: 20140711
  Serious: Yes (Other)
  Sender: FDA-Public Use
  Company Number: JP-ASTELLAS-2011JP000009

PATIENT
  Age: 41 Year
  Sex: Female

DRUGS (22)
  1. TACROLIMUS CAPSULES [Suspect]
     Indication: LUPUS NEPHRITIS
     Dosage: 3 MG, UNKNOWN/D
     Route: 048
     Dates: start: 20070807, end: 20080223
  2. TACROLIMUS CAPSULES [Suspect]
     Dosage: 1.5 MG, UNKNOWN/D
     Route: 048
     Dates: start: 20080308, end: 20080321
  3. TACROLIMUS CAPSULES [Suspect]
     Dosage: 3 MG, UNKNOWN/D
     Route: 048
     Dates: start: 20080322
  4. PREDNISOLONE [Suspect]
     Indication: LUPUS NEPHRITIS
     Dosage: 17 MG, UNKNOWN/D
     Route: 048
     Dates: end: 20071123
  5. PREDNISOLONE [Suspect]
     Dosage: 16 MG, UNKNOWN/D
     Route: 048
     Dates: start: 20071124, end: 20080725
  6. PREDNISOLONE [Suspect]
     Dosage: 15 MG, UNKNOWN/D
     Route: 048
     Dates: start: 20080726, end: 20080926
  7. PREDNISOLONE [Suspect]
     Dosage: 14 MG, UNKNOWN/D
     Route: 048
     Dates: start: 20080927, end: 20081128
  8. PREDNISOLONE [Suspect]
     Dosage: 13 MG, UNKNOWN/D
     Route: 048
     Dates: start: 20081129, end: 20090130
  9. PREDNISOLONE [Suspect]
     Dosage: 12 MG, UNKNOWN/D
     Route: 048
     Dates: start: 20090131, end: 20100604
  10. PREDNISOLONE [Suspect]
     Dosage: 11 MG, UNKNOWN/D
     Route: 048
     Dates: start: 20100605, end: 20110211
  11. PREDNISOLONE [Suspect]
     Dosage: 10 MG, UNKNOWN/D
     Route: 048
     Dates: start: 20110212, end: 20120330
  12. PREDNISOLONE [Suspect]
     Dosage: 9 MG, UNKNOWN/D
     Route: 048
     Dates: start: 20120331, end: 20120928
  13. PREDNISOLONE [Suspect]
     Dosage: 17 MG, QOD
     Route: 048
     Dates: start: 20120929, end: 20130322
  14. PREDNISOLONE [Suspect]
     Dosage: 8 MG, UNKNOWN/D
     Route: 048
     Dates: start: 20130323
  15. BENET [Concomitant]
     Indication: PROPHYLAXIS
     Dosage: 2.5 MG, UNKNOWN/D
     Route: 048
  16. BAYASPIRIN [Concomitant]
     Indication: PROPHYLAXIS
     Dosage: 100 MG, UNKNOWN/D
     Route: 048
  17. ALFAROL [Concomitant]
     Indication: PROPHYLAXIS
     Dosage: 0.5 UG, UNKNOWN/D
     Route: 048
  18. MUCOSTA [Concomitant]
     Indication: PROPHYLAXIS
     Dosage: 100 MG, UNKNOWN/D
     Route: 048
  19. MUCOSTA [Concomitant]
     Dosage: 200 MG, UNKNOWN/D
     Route: 048
  20. FERROMIA [Concomitant]
     Indication: IRON DEFICIENCY ANAEMIA
     Dosage: 100 MG, UNKNOWN/D
     Route: 048
  21. TRANSAMIN [Concomitant]
     Indication: GINGIVITIS
     Dosage: 500 MG, TID
     Route: 048
     Dates: start: 20080224, end: 20080308
  22. EMPYNASE                           /00521001/ [Concomitant]
     Indication: GINGIVITIS
     Dosage: 18000 IU, TID
     Route: 048
     Dates: start: 20080224, end: 20080308

REACTIONS (2)
  - Gingivitis [Recovered/Resolved]
  - Influenza [Recovered/Resolved]
